FAERS Safety Report 4987116-6 (Version None)
Quarter: 2006Q2

REPORT INFORMATION
  Report Type: 
  Country: None (occurrence: None)
  Receive Date: 20060501
  Receipt Date: 20060418
  Transmission Date: 20061013
  Serious: Yes (Life-Threatening, Hospitalization, Disabling)
  Sender: FDA-Public Use
  Company Number: US-JNJFOC-20060404099

PATIENT
  Sex: Male
  Weight: 18.5 kg

DRUGS (21)
  1. CHILDREN'S MOTRIN [Suspect]
  2. CHILDREN'S MOTRIN [Suspect]
  3. CHILDREN'S MOTRIN [Suspect]
  4. CEFZIL [Suspect]
     Route: 048
  5. CEFUROXIME [Suspect]
     Route: 042
  6. CEFUROXIME [Suspect]
     Route: 042
  7. CEFAZOLIN [Suspect]
     Route: 042
  8. CEFOXITIN [Suspect]
     Route: 042
  9. POTASSIUM CHLORIDE [Concomitant]
     Indication: DRUG USE FOR UNKNOWN INDICATION
     Dosage: 30 MEQQ 8 HOUR; Q 12 H PRN
  10. HYDROCORTISONE [Concomitant]
     Indication: ECZEMA
     Dosage: AS NECESSARY
     Route: 061
  11. TYLENOL (CAPLET) [Concomitant]
     Dosage: AS NECESSARY
  12. FLUCONAZOLE [Concomitant]
     Indication: DRUG USE FOR UNKNOWN INDICATION
     Route: 050
  13. ATIVAN [Concomitant]
     Indication: DRUG USE FOR UNKNOWN INDICATION
     Route: 050
  14. LANSOPRAZOLE [Concomitant]
     Indication: DRUG USE FOR UNKNOWN INDICATION
     Route: 050
  15. ALDACTONE [Concomitant]
     Indication: DRUG USE FOR UNKNOWN INDICATION
     Route: 050
  16. FUROSEMIDE [Concomitant]
     Indication: DRUG USE FOR UNKNOWN INDICATION
     Dosage: 0.25 MG/KG/HR CONTINUOUS
     Route: 042
  17. FENTANYL [Concomitant]
     Indication: DRUG USE FOR UNKNOWN INDICATION
     Dosage: 50 MCH/HR CONTINUOUS VIA J-TUBE/BOLUS 25-50 MECG IV Q 1 HOUR PRN
  18. CIPROFLOXACIN [Concomitant]
     Indication: DRUG USE FOR UNKNOWN INDICATION
     Dosage: EACH EYE
     Route: 047
  19. LACRI-LUBE [Concomitant]
  20. LACRI-LUBE [Concomitant]
  21. LACRI-LUBE [Concomitant]
     Indication: DRUG USE FOR UNKNOWN INDICATION

REACTIONS (3)
  - CARDIOMYOPATHY [None]
  - PERICARDIAL EFFUSION [None]
  - TOXIC EPIDERMAL NECROLYSIS [None]
